FAERS Safety Report 9959732 (Version 1)
Quarter: 2014Q1

REPORT INFORMATION
  Report Type: Spontaneous
  Country: US (occurrence: None)
  Receive Date: 20140228
  Receipt Date: 20140228
  Transmission Date: 20141002
  Serious: Yes (Hospitalization)
  Sender: FDA-Public Use
  Company Number: None

PATIENT
  Age: 61 Year
  Sex: 0

DRUGS (13)
  1. TIKOSYN [Suspect]
     Dosage: 250MCG BID Q 12HRS PO
     Route: 048
     Dates: start: 20130719
  2. POTASSIUM [Concomitant]
  3. LASIX [Concomitant]
  4. OMEPRAZOLE [Concomitant]
  5. NEURONTIN [Concomitant]
  6. NORVASC [Concomitant]
  7. LIVASA [Concomitant]
  8. NITROSL [Concomitant]
  9. COUMADIN [Concomitant]
  10. CLONAZEPAM [Concomitant]
  11. COLACE [Concomitant]
  12. MAGNESIUM [Concomitant]
  13. VICODIN [Concomitant]

REACTIONS (2)
  - Transient ischaemic attack [None]
  - Amnesia [None]
